FAERS Safety Report 15563426 (Version 1)
Quarter: 2018Q4

REPORT INFORMATION
  Report Type: Spontaneous
  Country: US (occurrence: US)
  Receive Date: 20181029
  Receipt Date: 20181029
  Transmission Date: 20190205
  Serious: Yes (Other)
  Sender: FDA-Public Use
  Company Number: US-MYLANLABS-2018M1081096

PATIENT
  Age: 7 Year
  Sex: Female

DRUGS (14)
  1. TOPOTECAN [Suspect]
     Active Substance: TOPOTECAN HYDROCHLORIDE
     Indication: RETINOBLASTOMA
     Route: 065
  2. CISPLATIN. [Suspect]
     Active Substance: CISPLATIN
     Indication: METASTASES TO BONE MARROW
  3. ETOPOSIDE. [Suspect]
     Active Substance: ETOPOSIDE
     Indication: RETINOBLASTOMA
     Dosage: PART OF CHILDREN^S ONCOLOGY GROUP ARET0321 PROTOCOL
     Route: 065
  4. ETOPOSIDE. [Suspect]
     Active Substance: ETOPOSIDE
     Indication: METASTASES TO BONE MARROW
  5. THIOTEPA. [Suspect]
     Active Substance: THIOTEPA
     Indication: METASTASES TO BONE MARROW
  6. CYCLOPHOSPHAMIDE. [Suspect]
     Active Substance: CYCLOPHOSPHAMIDE
     Indication: METASTASES TO BONE MARROW
  7. VINCRISTINE [Suspect]
     Active Substance: VINCRISTINE
     Indication: RETINOBLASTOMA
     Dosage: PART OF CHILDREN^S ONCOLOGY GROUP ARET0321 PROTOCOL
     Route: 065
  8. CARBOPLATIN. [Suspect]
     Active Substance: CARBOPLATIN
     Indication: METASTASES TO BONE MARROW
  9. THIOTEPA. [Suspect]
     Active Substance: THIOTEPA
     Indication: RETINOBLASTOMA
     Dosage: PART OF CHILDREN^S ONCOLOGY GROUP ARET0321 PROTOCOL
     Route: 065
  10. CISPLATIN. [Suspect]
     Active Substance: CISPLATIN
     Indication: RETINOBLASTOMA
     Dosage: PART OF CHILDREN^S ONCOLOGY GROUP ARET0321 PROTOCOL
     Route: 065
  11. VINCRISTINE [Suspect]
     Active Substance: VINCRISTINE
     Indication: METASTASES TO BONE MARROW
  12. TOPOTECAN [Suspect]
     Active Substance: TOPOTECAN HYDROCHLORIDE
     Indication: METASTASES TO BONE MARROW
  13. CARBOPLATIN. [Suspect]
     Active Substance: CARBOPLATIN
     Indication: RETINOBLASTOMA
     Dosage: HIGH DOSE CARBOPLATIN; PART OF CHILDREN^S ONCOLOGY GROUP ARET0321 PROTOCOL
     Route: 065
  14. CYCLOPHOSPHAMIDE. [Suspect]
     Active Substance: CYCLOPHOSPHAMIDE
     Indication: RETINOBLASTOMA
     Dosage: PART OF CHILDREN^S ONCOLOGY GROUP ARET0321 PROTOCOL
     Route: 065

REACTIONS (2)
  - Urinary bladder sarcoma [Recovered/Resolved]
  - Alveolar soft part sarcoma [Recovered/Resolved]
